FAERS Safety Report 16095461 (Version 3)
Quarter: 2020Q1

REPORT INFORMATION
  Report Type: Spontaneous
  Country: CA (occurrence: CA)
  Receive Date: 20190320
  Receipt Date: 20200330
  Transmission Date: 20200409
  Serious: Yes (Life-Threatening, Hospitalization, Other)
  Sender: FDA-Public Use
  Company Number: CA-009507513-1903CAN007141

PATIENT
  Age: 82 Year
  Sex: Female

DRUGS (27)
  1. DULOXETINE HYDROCHLORIDE. [Suspect]
     Active Substance: DULOXETINE HYDROCHLORIDE
     Indication: DYSPHAGIA
     Dosage: UNK
     Route: 065
  2. RISPERIDONE. [Suspect]
     Active Substance: RISPERIDONE
     Indication: PHAGOPHOBIA
  3. RISPERIDONE. [Suspect]
     Active Substance: RISPERIDONE
     Indication: PRODUCT USED FOR UNKNOWN INDICATION
  4. RISPERIDONE. [Suspect]
     Active Substance: RISPERIDONE
     Indication: DYSPHAGIA
  5. VENLAFAXINE HYDROCHLORIDE. [Suspect]
     Active Substance: VENLAFAXINE HYDROCHLORIDE
     Indication: CHOKING SENSATION
     Dosage: UNK
     Route: 065
  6. RISPERIDONE. [Suspect]
     Active Substance: RISPERIDONE
     Indication: CHOKING SENSATION
     Dosage: UNK
     Route: 065
  7. RISPERIDONE. [Suspect]
     Active Substance: RISPERIDONE
     Indication: DYSPHAGIA
  8. REMERON [Suspect]
     Active Substance: MIRTAZAPINE
     Indication: PHAGOPHOBIA
     Dosage: UNK
     Route: 065
  9. DULOXETINE HYDROCHLORIDE. [Suspect]
     Active Substance: DULOXETINE HYDROCHLORIDE
     Indication: CHOKING SENSATION
     Dosage: 60 MILLIGRAM
     Route: 065
  10. LORAZEPAM. [Suspect]
     Active Substance: LORAZEPAM
     Indication: CHOKING SENSATION
     Dosage: 10 MILLIGRAM
     Route: 065
  11. LORAZEPAM. [Suspect]
     Active Substance: LORAZEPAM
     Indication: PHAGOPHOBIA
     Dosage: DOSAGE FORM: NOT SPECIFIED
     Route: 065
  12. DULOXETINE HYDROCHLORIDE. [Suspect]
     Active Substance: DULOXETINE HYDROCHLORIDE
     Indication: PRODUCT USED FOR UNKNOWN INDICATION
  13. LORAZEPAM. [Suspect]
     Active Substance: LORAZEPAM
     Indication: PRODUCT USED FOR UNKNOWN INDICATION
  14. LORAZEPAM. [Suspect]
     Active Substance: LORAZEPAM
     Indication: ANXIETY
  15. OLANZAPINE. [Suspect]
     Active Substance: OLANZAPINE
     Indication: CHOKING SENSATION
     Dosage: 10 MILLIGRAM DOSAGE FORM: NOT SPECIFIED
     Route: 065
  16. OLANZAPINE. [Suspect]
     Active Substance: OLANZAPINE
     Indication: PRODUCT USED FOR UNKNOWN INDICATION
  17. RISPERIDONE. [Suspect]
     Active Substance: RISPERIDONE
     Indication: CHOKING SENSATION
     Dosage: DOSAGE FORM: NOT SPECIFIED
     Route: 065
  18. DULOXETINE HYDROCHLORIDE. [Suspect]
     Active Substance: DULOXETINE HYDROCHLORIDE
     Indication: PHAGOPHOBIA
     Dosage: UNK
     Route: 065
  19. VENLAFAXINE HYDROCHLORIDE. [Suspect]
     Active Substance: VENLAFAXINE HYDROCHLORIDE
     Indication: PHAGOPHOBIA
     Dosage: UNK
     Route: 065
  20. REMERON [Suspect]
     Active Substance: MIRTAZAPINE
     Indication: DYSPHAGIA
  21. LORAZEPAM. [Suspect]
     Active Substance: LORAZEPAM
     Indication: DYSPHAGIA
  22. OLANZAPINE. [Suspect]
     Active Substance: OLANZAPINE
     Indication: PHAGOPHOBIA
     Dosage: 10 MILLIGRAM
     Route: 065
  23. VENLAFAXINE HYDROCHLORIDE. [Suspect]
     Active Substance: VENLAFAXINE HYDROCHLORIDE
     Indication: PRODUCT USED FOR UNKNOWN INDICATION
  24. REMERON [Suspect]
     Active Substance: MIRTAZAPINE
     Indication: CHOKING SENSATION
     Dosage: 45 MILLIGRAM
     Route: 065
  25. REMERON [Suspect]
     Active Substance: MIRTAZAPINE
     Indication: PRODUCT USED FOR UNKNOWN INDICATION
  26. OLANZAPINE. [Suspect]
     Active Substance: OLANZAPINE
     Indication: DYSPHAGIA
     Dosage: UNK
     Route: 065
  27. VENLAFAXINE HYDROCHLORIDE. [Suspect]
     Active Substance: VENLAFAXINE HYDROCHLORIDE
     Indication: PHAGOPHOBIA
     Dosage: UNK
     Route: 065

REACTIONS (5)
  - Phagophobia [Unknown]
  - Drug ineffective [Recovered/Resolved]
  - Tardive dyskinesia [Unknown]
  - Drug resistance [Unknown]
  - Therapeutic product effect incomplete [Unknown]
